FAERS Safety Report 10662852 (Version 1)
Quarter: 2014Q4

REPORT INFORMATION
  Report Type: Spontaneous
  Country: US (occurrence: US)
  Receive Date: 20141218
  Receipt Date: 20141218
  Transmission Date: 20150529
  Serious: No
  Sender: FDA-Public Use
  Company Number: US-GALDERMA-US13003779

PATIENT
  Age: 47 Year
  Sex: Female

DRUGS (10)
  1. KLARON (SODIUM SULFACETAMIDE) LOTION [Concomitant]
     Indication: ACNE
     Route: 061
     Dates: start: 2006
  2. MOISTURIZER [Concomitant]
     Active Substance: UNSPECIFIED INGREDIENT
     Indication: DRY SKIN PROPHYLAXIS
     Route: 061
  3. METROGEL [Suspect]
     Active Substance: METRONIDAZOLE
     Indication: ROSACEA
     Dosage: 0.75%
     Route: 061
     Dates: start: 1998, end: 20131104
  4. AQUANIL CLEANSER [Concomitant]
     Active Substance: GLYCERIN
     Indication: THERAPEUTIC SKIN CARE TOPICAL
     Route: 061
  5. RETIN A MICRO (TRETINOIN GEL) [Concomitant]
     Indication: ACNE
     Route: 061
     Dates: start: 1998
  6. RANITIDINE [Concomitant]
     Active Substance: RANITIDINE\RANITIDINE HYDROCHLORIDE
     Indication: GASTROOESOPHAGEAL REFLUX DISEASE
     Route: 048
  7. ACZONE (DAPSONE) [Concomitant]
     Indication: ACNE
     Route: 061
     Dates: start: 2010
  8. PROTONIX (PANTOPRAZOLE) [Concomitant]
     Indication: GASTROOESOPHAGEAL REFLUX DISEASE
     Route: 048
  9. SPIRONOLACTONE. [Concomitant]
     Active Substance: SPIRONOLACTONE
     Indication: ACNE
     Route: 048
  10. KLARON (SODIUM SULFACETAMIDE) LOTION [Concomitant]
     Indication: ROSACEA

REACTIONS (1)
  - Drug ineffective [Unknown]

NARRATIVE: CASE EVENT DATE: 201310
